FAERS Safety Report 8552467-5 (Version None)
Quarter: 2012Q3

REPORT INFORMATION
  Report Type: 
  Country: None (occurrence: None)
  Receive Date: 20120731
  Receipt Date: 20120720
  Transmission Date: 20120928
  Serious: Yes (Hospitalization)
  Sender: FDA-Public Use
  Company Number: US-BAYER-2012-023936

PATIENT
  Age: 32 Year
  Sex: Female
  Weight: 67.574 kg

DRUGS (37)
  1. MOTRIN [Concomitant]
     Dosage: UNK UNK, PRN
     Route: 048
     Dates: start: 20060821, end: 20090805
  2. INDOMETHACIN [Concomitant]
     Dosage: UNK
     Dates: start: 20050101
  3. PREDNISONE [Concomitant]
     Dosage: 20 MG, UNK
     Route: 048
     Dates: start: 20090504, end: 20101029
  4. DOCUSATE [Concomitant]
  5. CIPROFLAXACIN [Concomitant]
     Dosage: UNK
     Dates: start: 20050101
  6. GABAPENTIN [Concomitant]
     Dosage: UNK
     Dates: start: 20050101
  7. METROGEL [Concomitant]
     Dosage: UNK
     Dates: start: 20050101
  8. ACETAMINOPHEN AND OXYCODONE HCL [Concomitant]
     Dosage: UNK
     Dates: start: 20050101
  9. FEXOFENADINE [Concomitant]
     Dosage: UNK
     Dates: start: 20050101
  10. SULFAMETHOXAZOLE AND TRIMETHOPRIM [Concomitant]
     Dosage: UNK
     Dates: start: 20050101
  11. ATIVAN [Concomitant]
     Dosage: 1 MG, UNK
     Dates: start: 20090802
  12. CYCLOBENAZPRINE [Concomitant]
     Dosage: UNK
     Dates: start: 20050101
  13. DOXYCYCLINE [Concomitant]
     Dosage: UNK
     Dates: start: 20050101
  14. IBUPROFEN [Concomitant]
     Dosage: UNK
     Dates: start: 20050101
  15. DROSPIRENONE AND ETHINYL ESTRADIOL [Suspect]
     Indication: CONTRACEPTION
     Dosage: UNK
     Dates: start: 20090401, end: 20090817
  16. ANUCORT-HC [Concomitant]
     Dosage: UNK
     Dates: start: 20050101
  17. OMEPRAZOLE [Concomitant]
     Dosage: 20 MG, UNK
     Route: 048
     Dates: start: 20090622, end: 20120126
  18. OMEPRAZOLE [Concomitant]
     Dosage: UNK
     Dates: start: 20050101
  19. DARVOCET [Concomitant]
  20. FLUCONAZOLE [Concomitant]
     Dosage: UNK
     Dates: start: 20050101
  21. HYDROMORPHONE HYDROCHLORIDE [Concomitant]
     Dosage: UNK
     Dates: start: 20050101
  22. SUMATRIPTAN [Concomitant]
     Dosage: UNK
     Dates: start: 20050101
  23. TRAMADOL HCL [Concomitant]
     Dosage: UNK
     Dates: start: 20050101
  24. ANUCORT-HC [Concomitant]
     Dosage: UNK
     Route: 054
     Dates: start: 20090622
  25. AZITHROMYCIN [Concomitant]
     Dosage: UNK
     Dates: start: 20050101
  26. BELLADONNA AND PHENOBARBITONE [Concomitant]
     Dosage: UNK
     Dates: start: 20050101
  27. NAPROXEN [Concomitant]
     Dosage: UNK
     Dates: start: 20050101
  28. SULFAMETHOXAZOLE [Concomitant]
     Dosage: UNK
     Dates: start: 20050101
  29. YAZ [Suspect]
     Indication: CONTRACEPTION
     Dosage: UNK
     Dates: start: 20071101, end: 20071101
  30. OXYCODONE AND ACETAMINOPHEN [Concomitant]
     Dosage: 5-325 MG
     Route: 048
     Dates: start: 20071203, end: 20100206
  31. NITROFURANTOIN [Concomitant]
     Dosage: UNK
     Dates: start: 20050101
  32. TOPIRAMATE [Concomitant]
     Dosage: UNK
     Dates: start: 20050101
  33. VALACICLOVIR [Concomitant]
     Dosage: UNK
     Dates: start: 20050101
  34. AMOXICILLIN AND CLAVULANATE POTASSIUM [Concomitant]
     Dosage: UNK
     Dates: start: 20050101
  35. METRONIDAZOLE [Concomitant]
     Dosage: UNK
     Dates: start: 20050101
  36. OXYCODONE HCL [Concomitant]
     Dosage: UNK
     Dates: start: 20050101
  37. VITAMIN D2 [Concomitant]
     Dosage: UNK
     Dates: start: 20050101

REACTIONS (6)
  - PULMONARY EMBOLISM [None]
  - PULMONARY INFARCTION [None]
  - EMOTIONAL DISTRESS [None]
  - GENERAL PHYSICAL HEALTH DETERIORATION [None]
  - PAIN [None]
  - ANXIETY [None]
